FAERS Safety Report 6040603-4 (Version None)
Quarter: 2009Q1

REPORT INFORMATION
  Report Type: 
  Country: None (occurrence: None)
  Receive Date: 20090116
  Receipt Date: 20080414
  Transmission Date: 20090719
  Serious: No
  Sender: FDA-Public Use
  Company Number: US-BRISTOL-MYERS SQUIBB COMPANY-14150544

PATIENT
  Age: 51 Year
  Sex: Female

DRUGS (5)
  1. ABILIFY [Suspect]
     Indication: ALCOHOLISM
  2. ABILIFY [Suspect]
     Indication: POST-TRAUMATIC STRESS DISORDER
  3. ABILIFY [Suspect]
     Indication: DEPRESSION
  4. ZOLOFT [Concomitant]
  5. TRAZODONE HCL [Concomitant]

REACTIONS (2)
  - DRUG INEFFECTIVE [None]
  - WEIGHT INCREASED [None]
